FAERS Safety Report 9159724 (Version 2)
Quarter: 2013Q1

REPORT INFORMATION
  Report Type: Spontaneous
  Country: US (occurrence: US)
  Receive Date: 20130313
  Receipt Date: 20130322
  Transmission Date: 20140127
  Serious: No
  Sender: FDA-Public Use
  Company Number: US-PFIZER INC-2013080483

PATIENT
  Sex: Female

DRUGS (3)
  1. EPIPEN [Suspect]
     Dosage: UNK
  2. BENADRYL [Suspect]
     Dosage: 2 SHOTS
  3. ZANTAC [Suspect]
     Dosage: UNK

REACTIONS (1)
  - Euphoric mood [Unknown]
